FAERS Safety Report 14590687 (Version 1)
Quarter: 2018Q1

REPORT INFORMATION
  Report Type: Spontaneous
  Country: AU (occurrence: AU)
  Receive Date: 20180302
  Receipt Date: 20180302
  Transmission Date: 20180509
  Serious: Yes (Other)
  Sender: FDA-Public Use
  Company Number: AU-009507513-1802AUS013631

PATIENT
  Sex: Female

DRUGS (1)
  1. SINGULAIR [Suspect]
     Active Substance: MONTELUKAST SODIUM
     Dosage: UNK, UNK
     Route: 048
     Dates: start: 2015

REACTIONS (5)
  - Suicide attempt [Unknown]
  - Suicidal ideation [Unknown]
  - Intentional self-injury [Unknown]
  - Mental disorder [Unknown]
  - Emergency care [Unknown]

NARRATIVE: CASE EVENT DATE: 2015
